FAERS Safety Report 12242663 (Version 10)
Quarter: 2019Q2

REPORT INFORMATION
  Report Type: Spontaneous
  Country: US (occurrence: US)
  Receive Date: 20160406
  Receipt Date: 20190530
  Transmission Date: 20190711
  Serious: Yes (Hospitalization, Other)
  Sender: FDA-Public Use
  Company Number: US-PFIZER INC-2016015358

PATIENT
  Age: 58 Year
  Sex: Female
  Weight: 81 kg

DRUGS (41)
  1. ARTHROTEC [Concomitant]
     Active Substance: DICLOFENAC SODIUM\MISOPROSTOL
     Indication: PAIN
     Dosage: 1 DF, 2X/DAY (DICLOFENAC SODIUM 75 MG, MISOPROSTOL 200 MCG, ONE IN THE MORNING AND ONE AT NIGHT)
     Route: 048
     Dates: start: 1980
  2. CYTOMEL [Concomitant]
     Active Substance: LIOTHYRONINE SODIUM
     Indication: THYROID DISORDER
     Dosage: 5 UG, 1X/DAY
     Dates: start: 2013
  3. ACIDOPHILUS [Concomitant]
     Active Substance: LACTOBACILLUS ACIDOPHILUS
     Dosage: 10 MG, 2X/DAY
     Dates: start: 2009
  4. ALLEGRA-D [Concomitant]
     Active Substance: FEXOFENADINE\PSEUDOEPHEDRINE
     Dosage: 1 DF, 2X/DAY
     Dates: start: 2009
  5. CALCIUM [Concomitant]
     Active Substance: CALCIUM
     Dosage: 600 MG, 2X/DAY
     Dates: start: 2012
  6. TYLENOL [Concomitant]
     Active Substance: ACETAMINOPHEN
     Indication: HEADACHE
     Dosage: 500 MG, 2-3 TIMES A DAY
  7. DOCUSATE SODIUM. [Concomitant]
     Active Substance: DOCUSATE SODIUM
     Indication: FAECES SOFT
     Dosage: 200 MG, 2X/DAY
  8. PANTOPRAZOLE [Suspect]
     Active Substance: PANTOPRAZOLE
     Indication: HIATUS HERNIA
     Dosage: UNK
     Dates: start: 2013, end: 2013
  9. ARTHROTEC [Concomitant]
     Active Substance: DICLOFENAC SODIUM\MISOPROSTOL
     Indication: BACK PAIN
     Dosage: UNK
     Dates: start: 2005
  10. TIROSINT [Concomitant]
     Active Substance: LEVOTHYROXINE SODIUM
     Indication: AUTOIMMUNE THYROIDITIS
     Dosage: 78 UG, 1X/DAY
  11. TIROSINT [Concomitant]
     Active Substance: LEVOTHYROXINE SODIUM
     Dosage: 78 UG, WEEKLY (78 MCG ONE DAY PER WEEK)
     Dates: start: 2013
  12. CYTOMEL [Concomitant]
     Active Substance: LIOTHYRONINE SODIUM
     Indication: THYROIDITIS
  13. LEXAPRO [Concomitant]
     Active Substance: ESCITALOPRAM OXALATE
     Indication: DEPRESSION
     Dosage: 20 MG, 1X/DAY
     Dates: start: 2006
  14. SINGULAIR [Concomitant]
     Active Substance: MONTELUKAST SODIUM
     Indication: ASTHMA
     Dosage: 10 MG, 1X/DAY (9:00 AM)
     Dates: start: 2009
  15. ADVAIR HFA [Concomitant]
     Active Substance: FLUTICASONE PROPIONATE\SALMETEROL XINAFOATE
     Dosage: UNK, 2X/DAY (FLUTICASONE PROPIONATE, SALMETEROL XINAFOATE 100/50ONE PUFF TWO TIMES DAILY)
     Dates: start: 1999
  16. LIDOCAINE. [Concomitant]
     Active Substance: LIDOCAINE
     Indication: BACK PAIN
     Dosage: 2 DF, AS NEEDED
     Route: 003
  17. LIDOCAINE. [Concomitant]
     Active Substance: LIDOCAINE
     Indication: ARTHRALGIA
  18. TRAZODONE [Concomitant]
     Active Substance: TRAZODONE HYDROCHLORIDE
     Indication: SLEEP DISORDER
     Dosage: 100 MG, 1X/DAY (AT BEDTIME)
     Dates: start: 2006
  19. FLEXERIL [Concomitant]
     Active Substance: CYCLOBENZAPRINE HYDROCHLORIDE
     Indication: BACK PAIN
     Dosage: 10 MG, AS NEEDED (AT NIGHT)
     Dates: start: 201304
  20. VENTOLIN HFA [Concomitant]
     Active Substance: ALBUTEROL SULFATE
     Indication: ASTHMA
     Dosage: 2 DF, AS NEEDED
     Route: 055
  21. ASTEPRO [Concomitant]
     Active Substance: AZELASTINE HYDROCHLORIDE
     Dosage: UNK UNK, AS NEEDED
     Route: 045
     Dates: start: 2009
  22. FLONASE [Concomitant]
     Active Substance: FLUTICASONE PROPIONATE
     Dosage: UNK, AS NEEDED
     Route: 045
     Dates: start: 2009
  23. ASPIRIN. [Concomitant]
     Active Substance: ASPIRIN
     Dosage: 325 MG, 1X/DAY
     Dates: start: 2009
  24. GAMMAGARD [Concomitant]
     Active Substance: HUMAN IMMUNOGLOBULIN G
     Indication: IMMUNODEFICIENCY
     Dosage: EVERY 4 WEEKS
     Route: 042
     Dates: start: 201208
  25. FLEXERIL [Concomitant]
     Active Substance: CYCLOBENZAPRINE HYDROCHLORIDE
     Indication: ARTHRALGIA
     Dosage: UNK
     Dates: start: 2012
  26. ESCITALOPRAM [Concomitant]
     Active Substance: ESCITALOPRAM OXALATE
     Indication: DEPRESSION
     Dosage: 25 MG, 1X/DAY (9:00 AM)
     Dates: start: 2006
  27. TYLENOL [Concomitant]
     Active Substance: ACETAMINOPHEN
     Dosage: UNK
     Dates: end: 2014
  28. FISH OIL [Concomitant]
     Active Substance: FISH OIL
     Dosage: 2400 MG, 1X/DAY
     Dates: start: 2012
  29. ULTRAM [Concomitant]
     Active Substance: TRAMADOL HYDROCHLORIDE
     Indication: HEADACHE
     Dosage: 200 MG, AS NEEDED
     Dates: start: 2006
  30. FLEXERIL [Concomitant]
     Active Substance: CYCLOBENZAPRINE HYDROCHLORIDE
     Indication: MYALGIA
     Dosage: 20 MG, 1X/DAY (AT BEDTIME)
  31. VANTIN [Concomitant]
     Active Substance: CEFPODOXIME PROXETIL
     Indication: PNEUMONIA
     Dosage: 200 MG, 2X/DAY
  32. VANTIN [Concomitant]
     Active Substance: CEFPODOXIME PROXETIL
     Dosage: 400 MG, 2X/DAY (200MG 2 TABLETS TWO TIMES A DAY)
     Dates: start: 2009
  33. PANTOPRAZOLE [Suspect]
     Active Substance: PANTOPRAZOLE
     Indication: GASTROOESOPHAGEAL REFLUX DISEASE
     Dosage: 40 MG, 2X/DAY
  34. CRESTOR [Concomitant]
     Active Substance: ROSUVASTATIN CALCIUM
     Dosage: 5 MG, 1X/DAY (AT BEDTIME)
     Dates: start: 2006
  35. TIROSINT [Concomitant]
     Active Substance: LEVOTHYROXINE SODIUM
     Dosage: 91 UG, DAILY (91MCG 6 DAYS PER WEEK)
     Dates: start: 2013
  36. VALIUM [Concomitant]
     Active Substance: DIAZEPAM
     Dosage: 10 MG, 1X/DAY (AT BEDTIME)
     Dates: start: 2012
  37. POTASSIUM [Concomitant]
     Active Substance: POTASSIUM
     Dosage: 500 MG, 1X/DAY
     Dates: start: 2009
  38. TIROSINT [Concomitant]
     Active Substance: LEVOTHYROXINE SODIUM
     Indication: THYROID DISORDER
     Dosage: 65 UG, 1X/DAY
  39. ADVAIR HFA [Concomitant]
     Active Substance: FLUTICASONE PROPIONATE\SALMETEROL XINAFOATE
     Indication: ASTHMA
     Dosage: 1 DF, 2X/DAY
  40. ATERAX [Concomitant]
     Active Substance: HYDROXYZINE HYDROCHLORIDE
     Indication: PRURITUS
     Dosage: 50 MG, AS NEEDED
  41. VITAMIN D [Concomitant]
     Active Substance: VITAMIN D NOS
     Dosage: 400 MG, 3X/DAY
     Dates: start: 2012

REACTIONS (3)
  - Vomiting [Recovered/Resolved]
  - Pneumonia aspiration [Recovered/Resolved]
  - Drug ineffective [Unknown]

NARRATIVE: CASE EVENT DATE: 200811
